FAERS Safety Report 8244919-2 (Version None)
Quarter: 2012Q1

REPORT INFORMATION
  Report Type: 
  Country: None (occurrence: None)
  Receive Date: 20120329
  Receipt Date: 20110914
  Transmission Date: 20120608
  Serious: No
  Sender: FDA-Public Use
  Company Number: US-MYLANLABS-2011S1019119

PATIENT
  Age: 39 Year
  Sex: Male

DRUGS (10)
  1. PRILOSEC [Concomitant]
     Route: 048
  2. METOPROLOL SUCCINATE [Concomitant]
     Route: 048
  3. OLEPTRO [Concomitant]
     Route: 048
  4. PERCOCET [Concomitant]
     Indication: PAIN
     Route: 048
  5. FLEXERIL [Concomitant]
     Indication: PAIN
     Route: 048
  6. ATIVAN [Concomitant]
     Indication: ANXIETY
     Route: 048
  7. PAXIL [Concomitant]
     Indication: DEPRESSION
     Route: 048
  8. FENTANYL-100 [Suspect]
     Indication: PAIN
     Dosage: Q72H
     Route: 062
     Dates: start: 20110201
  9. AMBIEN [Concomitant]
     Route: 048
  10. LAMICTAL [Concomitant]
     Indication: CONVULSION
     Route: 048

REACTIONS (1)
  - FALSE NEGATIVE INVESTIGATION RESULT [None]
